FAERS Safety Report 10367395 (Version 1)
Quarter: 2014Q3

REPORT INFORMATION
  Report Type: Spontaneous
  Country: US (occurrence: None)
  Receive Date: 20140805
  Receipt Date: 20140805
  Transmission Date: 20150326
  Serious: No
  Sender: FDA-Public Use
  Company Number: None

PATIENT
  Age: 41 Year
  Sex: Female

DRUGS (4)
  1. ALPRAZOLAM. [Concomitant]
     Active Substance: ALPRAZOLAM
  2. CLONAZEPAM. [Concomitant]
     Active Substance: CLONAZEPAM
  3. ESCITALOPRM [Concomitant]
  4. INFLIXIMAB [Suspect]
     Active Substance: INFLIXIMAB
     Indication: CROHN^S DISEASE
     Dates: start: 201304, end: 20130622

REACTIONS (3)
  - Enterocolonic fistula [None]
  - Drug-induced liver injury [None]
  - Anal fistula [None]

NARRATIVE: CASE EVENT DATE: 20130712
